FAERS Safety Report 24165103 (Version 1)
Quarter: 2024Q3

REPORT INFORMATION
  Report Type: Spontaneous
  Country: GB (occurrence: GB)
  Receive Date: 20240802
  Receipt Date: 20240802
  Transmission Date: 20241016
  Serious: Yes (Other)
  Sender: NOVO NORDISK
  Company Number: GB-MHRA-TPP7093033C6151362YC1721640222336

PATIENT
  Age: 48 Year
  Sex: Male
  Weight: 115 kg

DRUGS (10)
  1. RYBELSUS [Suspect]
     Active Substance: SEMAGLUTIDE
     Indication: Ill-defined disorder
     Dosage: UNK
     Dates: start: 20240722
  2. LANSOPRAZOLE [Concomitant]
     Active Substance: LANSOPRAZOLE
     Indication: Prophylaxis
     Dosage: UNK (TAKE ONE CAPSULE ONCE A DAY)
     Dates: start: 20240508, end: 20240605
  3. NAPROXEN [Concomitant]
     Active Substance: NAPROXEN
     Indication: Ill-defined disorder
     Dosage: UNK (TAKE ONE TABLET TWICE DAILY)
     Dates: start: 20240508, end: 20240605
  4. CEPHALEXIN [Concomitant]
     Active Substance: CEPHALEXIN
     Indication: Urinary tract infection
     Dosage: UNK
     Dates: start: 20240709, end: 20240716
  5. CEPHALEXIN [Concomitant]
     Active Substance: CEPHALEXIN
     Indication: Pyelonephritis acute
  6. AMLODIPINE [Concomitant]
     Active Substance: AMLODIPINE BESYLATE
     Indication: Ill-defined disorder
     Dosage: UNK (ONE TABLET ONCE A DAY)
     Dates: start: 20240308
  7. ATORVASTATIN [Concomitant]
     Active Substance: ATORVASTATIN
     Indication: Ill-defined disorder
     Dosage: UNK (ONE TABLET ONCE A DAY   )
     Dates: start: 20240308
  8. BISOPROLOL [Concomitant]
     Active Substance: BISOPROLOL\BISOPROLOL FUMARATE
     Indication: Ill-defined disorder
     Dosage: UNK (ONE TABLET ONCE A DAY)
     Dates: start: 20240308
  9. RAMIPRIL [Concomitant]
     Active Substance: RAMIPRIL
     Indication: Ill-defined disorder
     Dosage: UNK (ONE CAPSULE ONCE A DAY)
     Dates: start: 20240308
  10. RYBELSUS [Concomitant]
     Active Substance: SEMAGLUTIDE
     Indication: Ill-defined disorder
     Dosage: UNK(AMBER 2) (SEMEGLUTIDE) TAKE ONE TABLET ONCE
     Dates: start: 20240403

REACTIONS (2)
  - Hepatic enzyme increased [Unknown]
  - Product use in unapproved indication [Unknown]

NARRATIVE: CASE EVENT DATE: 20240722
